FAERS Safety Report 7021011-6 (Version None)
Quarter: 2010Q3

REPORT INFORMATION
  Report Type: 
  Country: None (occurrence: None)
  Receive Date: 20100929
  Receipt Date: 20100923
  Transmission Date: 20110219
  Serious: Yes (Hospitalization, Other)
  Sender: FDA-Public Use
  Company Number: US-PFIZER INC-2010121897

PATIENT
  Sex: Female
  Weight: 72.109 kg

DRUGS (2)
  1. CHANTIX [Suspect]
     Indication: SMOKING CESSATION THERAPY
     Dosage: UNK
  2. NICOTROL [Suspect]
     Indication: SMOKING CESSATION THERAPY
     Dosage: 10 MG, UNK
     Dates: start: 20100601, end: 20100601

REACTIONS (4)
  - APPENDICITIS [None]
  - DRUG INEFFECTIVE [None]
  - NERVOUSNESS [None]
  - STRESS [None]
